FAERS Safety Report 7132867-0 (Version None)
Quarter: 2010Q4

REPORT INFORMATION
  Report Type: 
  Country: None (occurrence: None)
  Receive Date: 20101202
  Receipt Date: 20101129
  Transmission Date: 20110411
  Serious: No
  Sender: FDA-Public Use
  Company Number: US-PFIZER INC-2010159910

PATIENT
  Sex: Female
  Weight: 59.864 kg

DRUGS (2)
  1. PREMARIN [Suspect]
     Indication: ATROPHIC VULVOVAGINITIS
     Dosage: UNK
     Route: 067
     Dates: start: 20101020, end: 20101101
  2. VITAMINS [Concomitant]

REACTIONS (2)
  - ALOPECIA [None]
  - BLOOD IRON DECREASED [None]
